FAERS Safety Report 21140713 (Version 2)
Quarter: 2022Q3

REPORT INFORMATION
  Report Type: Spontaneous
  Country: FR (occurrence: FR)
  Receive Date: 20220728
  Receipt Date: 20220825
  Transmission Date: 20221027
  Serious: Yes (Hospitalization)
  Sender: FDA-Public Use
  Company Number: FR-009507513-2207FRA006651

PATIENT
  Age: 6 Year
  Sex: Female

DRUGS (15)
  1. TEMOZOLOMIDE [Suspect]
     Active Substance: TEMOZOLOMIDE
     Indication: Neuroblastoma recurrent
     Dosage: UNK
     Dates: start: 20200424, end: 20200508
  2. TEMOZOLOMIDE [Suspect]
     Active Substance: TEMOZOLOMIDE
     Dosage: UNK
     Dates: start: 20200522, end: 20211116
  3. TEMOZOLOMIDE [Suspect]
     Active Substance: TEMOZOLOMIDE
     Dosage: UNK
     Dates: start: 20211129, end: 20220419
  4. TEMOZOLOMIDE [Suspect]
     Active Substance: TEMOZOLOMIDE
     Dosage: 70 MG
     Route: 042
     Dates: start: 20220504
  5. VENETOCLAX [Suspect]
     Active Substance: VENETOCLAX
     Indication: Neuroblastoma recurrent
     Dosage: 250 MG, 1 IN 1 D
     Route: 048
     Dates: start: 20220502
  6. TOPOTECAN HYDROCHLORIDE [Suspect]
     Active Substance: TOPOTECAN HYDROCHLORIDE
     Indication: Neuroblastoma recurrent
     Dosage: MAXIMUM 5 DAYS EVERY 21 DAYS (0.75 MG/SQUARE METER)
     Route: 042
     Dates: start: 20220504
  7. VINCRISTINE [Concomitant]
     Active Substance: VINCRISTINE
     Indication: Neuroblastoma
     Dosage: UNK
     Dates: start: 20200424, end: 20200508
  8. TOPOTECAN [Concomitant]
     Active Substance: TOPOTECAN HYDROCHLORIDE
     Indication: Neuroblastoma
     Dosage: UNK
     Dates: start: 20200311, end: 20200411
  9. TOPOTECAN [Concomitant]
     Active Substance: TOPOTECAN HYDROCHLORIDE
     Dosage: UNK
     Dates: start: 20200424, end: 20200508
  10. BEVACIZUMAB [Concomitant]
     Active Substance: BEVACIZUMAB
     Indication: Neuroblastoma
     Dosage: UNK
     Dates: start: 20200424, end: 20200508
  11. MELATONIN [Concomitant]
     Active Substance: MELATONIN
     Indication: Sleep disorder
     Dosage: 2 MG, 1 IN 1 D
     Route: 048
     Dates: start: 202012
  12. BACTRIM [Concomitant]
     Active Substance: SULFAMETHOXAZOLE\TRIMETHOPRIM
     Indication: Prophylaxis
     Dosage: UNK
     Route: 048
     Dates: start: 201912
  13. EMLA [Concomitant]
     Active Substance: LIDOCAINE\PRILOCAINE
     Indication: Pain prophylaxis
     Dosage: 1 PATCH AS REQUIRED
     Route: 061
     Dates: start: 2019
  14. LIDOCAINE [Concomitant]
     Active Substance: LIDOCAINE
     Indication: Pain prophylaxis
     Dosage: 1 PATCH AS REQUIRED
     Dates: start: 2019
  15. SULFAMETHOXAZOLE [Concomitant]
     Active Substance: SULFAMETHOXAZOLE
     Indication: Prophylaxis
     Dosage: 400 MG, 3 IN 1 WEEK
     Dates: start: 201912

REACTIONS (3)
  - Parainfluenzae virus infection [Recovered/Resolved]
  - Metapneumovirus infection [Recovered/Resolved]
  - Product use in unapproved indication [Unknown]

NARRATIVE: CASE EVENT DATE: 20200424
